FAERS Safety Report 11514208 (Version 1)
Quarter: 2015Q3

REPORT INFORMATION
  Report Type: Spontaneous
  Country: US (occurrence: US)
  Receive Date: 20150903
  Receipt Date: 20150903
  Transmission Date: 20151125
  Serious: No
  Sender: FDA-Public Use
  Company Number: US-ELI_LILLY_AND_COMPANY-US201209000748

PATIENT
  Age: 60 Year
  Sex: Female

DRUGS (3)
  1. MODAFINIL. [Concomitant]
     Active Substance: MODAFINIL
  2. CYMBALTA [Suspect]
     Active Substance: DULOXETINE HYDROCHLORIDE
     Indication: ANXIETY
     Dosage: 60 MG ONCE DAILY AT NIGHT
     Route: 048
     Dates: start: 2002
  3. C-PAP [Concomitant]

REACTIONS (2)
  - Sleep apnoea syndrome [Unknown]
  - Hypersomnia [Unknown]

NARRATIVE: CASE EVENT DATE: 201207
